FAERS Safety Report 6935959-1 (Version None)
Quarter: 2010Q3

REPORT INFORMATION
  Report Type: 
  Country: None (occurrence: None)
  Receive Date: 20100823
  Receipt Date: 20100812
  Transmission Date: 20110219
  Serious: Yes (Hospitalization, Other)
  Sender: FDA-Public Use
  Company Number: GB-ELI_LILLY_AND_COMPANY-GB201008004099

PATIENT
  Age: 76 Year
  Sex: Male
  Weight: 94.2 kg

DRUGS (5)
  1. BYETTA [Suspect]
     Dosage: 5 UG, UNKNOWN
     Route: 058
     Dates: start: 20090301, end: 20100601
  2. ASPIRIN [Concomitant]
     Dosage: 75 MG, UNKNOWN
     Route: 048
  3. CANDESARTAN [Concomitant]
     Indication: HYPERTENSION
     Dosage: 8 MG, UNKNOWN
     Route: 048
  4. LANSOPRAZOLE [Concomitant]
     Indication: DYSPEPSIA
     Dosage: 30 MG, UNKNOWN
     Route: 048
  5. METFORMIN [Concomitant]
     Dosage: 1000 MG, UNKNOWN
     Route: 048

REACTIONS (2)
  - CHOLELITHIASIS [None]
  - PANCREATITIS ACUTE [None]
